FAERS Safety Report 5632715-1 (Version None)
Quarter: 2008Q1

REPORT INFORMATION
  Report Type: 
  Country: None (occurrence: None)
  Receive Date: 20080221
  Receipt Date: 20080211
  Transmission Date: 20080703
  Serious: Yes (Other)
  Sender: FDA-Public Use
  Company Number: FR-JNJFOC-20080103547

PATIENT
  Age: 50 Year
  Sex: Female
  Weight: 68 kg

DRUGS (1)
  1. REMICADE [Suspect]
     Indication: CROHN'S DISEASE
     Route: 042

REACTIONS (6)
  - ANOREXIA [None]
  - ASCITES [None]
  - ASTHENIA [None]
  - DISSEMINATED TUBERCULOSIS [None]
  - DYSPNOEA [None]
  - RETROPERITONEAL LYMPHADENOPATHY [None]
